FAERS Safety Report 18468482 (Version 2)
Quarter: 2021Q3

REPORT INFORMATION
  Report Type: Spontaneous
  Country: GB (occurrence: GB)
  Receive Date: 20201105
  Receipt Date: 20210916
  Transmission Date: 20211014
  Serious: Yes (Other)
  Sender: FDA-Public Use
  Company Number: GB-PFIZER INC-2020425266

PATIENT
  Sex: Female

DRUGS (4)
  1. COLOMYCIN [COLISTIN SULFATE] [Suspect]
     Active Substance: COLISTIN SULFATE
     Dosage: UNK
     Route: 065
  2. MEROPENEM. [Suspect]
     Active Substance: MEROPENEM
     Dosage: UNK
     Route: 065
  3. COLOBREATHE [Concomitant]
     Active Substance: COLISTIMETHATE SODIUM
     Dosage: UNK
  4. TOBI [Suspect]
     Active Substance: TOBRAMYCIN
     Dosage: UNK
     Route: 065

REACTIONS (9)
  - Feeling abnormal [Recovering/Resolving]
  - Presyncope [Recovering/Resolving]
  - Retching [Recovering/Resolving]
  - Lethargy [Recovering/Resolving]
  - Vomiting [Recovering/Resolving]
  - Malaise [Recovering/Resolving]
  - Dizziness [Recovering/Resolving]
  - Nausea [Recovering/Resolving]
  - Infection [Not Recovered/Not Resolved]
